FAERS Safety Report 23658488 (Version 1)
Quarter: 2024Q1

REPORT INFORMATION
  Report Type: Spontaneous
  Country: US (occurrence: None)
  Receive Date: 20240321
  Receipt Date: 20240321
  Transmission Date: 20240409
  Serious: No
  Sender: FDA-Public Use
  Company Number: None

PATIENT
  Sex: Female

DRUGS (1)
  1. LENALIDOMIDE [Suspect]
     Active Substance: LENALIDOMIDE
     Indication: Essential thrombocythaemia
     Dosage: OTHER FREQUENCY : 21 D ON 7 D OFF;?
     Route: 048
     Dates: start: 202312

REACTIONS (2)
  - Therapy interrupted [None]
  - White blood cell count decreased [None]
